FAERS Safety Report 4971014-8 (Version None)
Quarter: 2006Q2

REPORT INFORMATION
  Report Type: 
  Country: None (occurrence: None)
  Receive Date: 20060412
  Receipt Date: 20060330
  Transmission Date: 20061013
  Serious: Yes (Death)
  Sender: FDA-Public Use
  Company Number: PHBS2006JP04805

PATIENT
  Age: 49 Year
  Sex: Male

DRUGS (3)
  1. NORVASC [Concomitant]
     Route: 048
  2. BISOPROLOL [Concomitant]
     Route: 048
  3. CIBACEN [Suspect]
     Indication: HYPERTENSION

REACTIONS (1)
  - COMPLETED SUICIDE [None]
